FAERS Safety Report 4609389-1 (Version None)
Quarter: 2005Q1

REPORT INFORMATION
  Report Type: 
  Country: None (occurrence: None)
  Receive Date: 20050314
  Receipt Date: 20050302
  Transmission Date: 20050727
  Serious: Yes (Death)
  Sender: FDA-Public Use
  Company Number: 083-20785-05030174

PATIENT
  Age: 77 Year
  Sex: Male

DRUGS (5)
  1. THALIDOMIDE - PHARMION (THALIDOMIDE) (CAPSULES) [Suspect]
     Indication: MULTIPLE MYELOMA
     Dosage: 100-400MG, QD, ORAL
     Route: 048
  2. DEXAMETHASONE [Suspect]
     Indication: MULTIPLE MYELOMA
     Dosage: 40MG X4D QMONTHLY, ORAL
     Route: 048
  3. DIPHOSPHONATE (ALENDRONATE SODIUM) [Concomitant]
  4. MELPHALAN (MELPHALAN) [Concomitant]
  5. PREDNISONE [Concomitant]

REACTIONS (3)
  - COMA [None]
  - MENTAL DISORDER [None]
  - RENAL FAILURE ACUTE [None]
